FAERS Safety Report 4984398-1 (Version None)
Quarter: 2006Q2

REPORT INFORMATION
  Report Type: 
  Country: None (occurrence: None)
  Receive Date: 20060427
  Receipt Date: 20060419
  Transmission Date: 20061013
  Serious: Yes (Other)
  Sender: FDA-Public Use
  Company Number: DE-JNJFOC-20060404216

PATIENT
  Sex: Male

DRUGS (1)
  1. TERZOLIN LOSUNG [Suspect]
     Indication: DRUG USE FOR UNKNOWN INDICATION
     Route: 065

REACTIONS (2)
  - HYPERSENSITIVITY [None]
  - POOR QUALITY DRUG ADMINISTERED [None]
